FAERS Safety Report 4304519-3 (Version None)
Quarter: 2004Q1

REPORT INFORMATION
  Report Type: 
  Country: None (occurrence: None)
  Receive Date: 20040225
  Receipt Date: 20040225
  Transmission Date: 20041129
  Serious: Yes (Life-Threatening, Hospitalization)
  Sender: FDA-Public Use
  Company Number: None

PATIENT
  Age: 58 Year
  Sex: Male

DRUGS (1)
  1. LITHIUM [Suspect]
     Dosage: PO
     Route: 048

REACTIONS (8)
  - AZOTAEMIA [None]
  - DEPRESSED LEVEL OF CONSCIOUSNESS [None]
  - DIABETES INSIPIDUS [None]
  - HYPERNATRAEMIA [None]
  - NECROSIS [None]
  - PNEUMONITIS [None]
  - URINE OUTPUT [None]
  - URINE OUTPUT INCREASED [None]
